FAERS Safety Report 6376813-6 (Version None)
Quarter: 2009Q3

REPORT INFORMATION
  Report Type: 
  Country: None (occurrence: None)
  Receive Date: 20090925
  Receipt Date: 20090915
  Transmission Date: 20100115
  Serious: Yes (Hospitalization)
  Sender: FDA-Public Use
  Company Number: CA-ABBOTT-09P-028-0597679-00

PATIENT
  Sex: Female
  Weight: 83.536 kg

DRUGS (2)
  1. KALETRA [Suspect]
     Indication: HIV INFECTION
     Dates: start: 20070101
  2. TRUVADA [Concomitant]
     Indication: DRUG USE FOR UNKNOWN INDICATION
     Dates: end: 20090601

REACTIONS (8)
  - ASTHENIA [None]
  - HYPERHIDROSIS [None]
  - HYPOGLYCAEMIA [None]
  - JOINT SPRAIN [None]
  - OSTEOMYELITIS [None]
  - PLATELET COUNT DECREASED [None]
  - TREMOR [None]
  - WHITE BLOOD CELL COUNT DECREASED [None]
